FAERS Safety Report 18464847 (Version 1)
Quarter: 2020Q4

REPORT INFORMATION
  Report Type: Spontaneous
  Country: US (occurrence: US)
  Receive Date: 20201104
  Receipt Date: 20201104
  Transmission Date: 20210114
  Serious: Yes (Other)
  Sender: FDA-Public Use
  Company Number: US-009507513-2011USA000560

PATIENT
  Age: 36 Year
  Sex: Female
  Weight: 88.5 kg

DRUGS (9)
  1. PANTOPRAZOLE [Concomitant]
     Active Substance: PANTOPRAZOLE
     Indication: ABDOMINAL DISCOMFORT
     Dosage: 40 MILLIGRAM, QD
     Route: 048
  2. XANAX [Concomitant]
     Active Substance: ALPRAZOLAM
     Indication: ANXIETY
     Dosage: TAKES A HALF IN THE MORNING, A HALF IN AFTERNOON, A HALF IN EVENING AND 1 AT BEDTIME
     Route: 048
  3. LISINOPRIL. [Suspect]
     Active Substance: LISINOPRIL
     Indication: HYPERTENSION
  4. CYMBALTA [Concomitant]
     Active Substance: DULOXETINE HYDROCHLORIDE
     Indication: DEPRESSION
     Dosage: 60 MILLIGRAM, QD
     Route: 048
  5. ATORVASTATIN [Concomitant]
     Active Substance: ATORVASTATIN
     Indication: BLOOD CHOLESTEROL INCREASED
     Dosage: 40 MILLIGRAM, QD
     Route: 048
  6. HYDROCODONE [Concomitant]
     Active Substance: HYDROCODONE
     Indication: PAIN
     Dosage: 325 MILLIGRAM, Q12H
     Route: 048
  7. LISINOPRIL. [Suspect]
     Active Substance: LISINOPRIL
     Indication: BLOOD CHOLESTEROL INCREASED
     Dosage: UNK
     Route: 048
  8. ATORVASTATIN [Concomitant]
     Active Substance: ATORVASTATIN
     Indication: HYPERTENSION
  9. SYMBICORT [Suspect]
     Active Substance: BUDESONIDE\FORMOTEROL FUMARATE DIHYDRATE
     Indication: CHRONIC OBSTRUCTIVE PULMONARY DISEASE
     Dosage: UNK, Q12H
     Route: 055

REACTIONS (20)
  - Insomnia [Unknown]
  - Nodule [Unknown]
  - Constipation [Unknown]
  - Dysphonia [Unknown]
  - Pancreatitis [Unknown]
  - Injury [Unknown]
  - Mental disorder [Unknown]
  - Hyperhidrosis [Unknown]
  - Feeling cold [Unknown]
  - Dyspnoea [Unknown]
  - Gastric disorder [Unknown]
  - Anxiety [Unknown]
  - Irritable bowel syndrome [Unknown]
  - Confusional state [Unknown]
  - Depression [Unknown]
  - Pain [Unknown]
  - Condition aggravated [Unknown]
  - Cough [Unknown]
  - Impaired gastric emptying [Unknown]
  - Hot flush [Unknown]

NARRATIVE: CASE EVENT DATE: 1998
